FAERS Safety Report 18533443 (Version 1)
Quarter: 2020Q4

REPORT INFORMATION
  Report Type: Other
  Country: CA (occurrence: CA)
  Receive Date: 20201123
  Receipt Date: 20201123
  Transmission Date: 20210114
  Serious: Yes (Hospitalization, Other)
  Sender: FDA-Public Use
  Company Number: CA-CELLTRION INC.-2020CA031838

PATIENT

DRUGS (6)
  1. RITUXIMAB (UNKNOWN) [Suspect]
     Active Substance: RITUXIMAB
     Indication: PRODUCT USED FOR UNKNOWN INDICATION
     Dosage: UNK
     Route: 065
  2. AMLODIPINE [Concomitant]
     Active Substance: AMLODIPINE BESYLATE
     Indication: HYPERTENSION
     Route: 065
  3. DEXAMETHASONE. [Suspect]
     Active Substance: DEXAMETHASONE
     Indication: PRODUCT USED FOR UNKNOWN INDICATION
     Dosage: 40 MG, 1 EVERY 1 DAYS
     Route: 047
  4. REVOLADE [Suspect]
     Active Substance: ELTROMBOPAG
     Indication: IMMUNE THROMBOCYTOPENIA
     Dosage: 25 MG, 1 EVERY 1 DAYS
     Route: 048
  5. RITUXIMAB (UNKNOWN) [Suspect]
     Active Substance: RITUXIMAB
     Dosage: 650 MG, 1 EVERY 1 WEEKS
     Route: 042
  6. REVOLADE [Suspect]
     Active Substance: ELTROMBOPAG
     Indication: IMMUNE THROMBOCYTOPENIA
     Dosage: 75 MG
     Route: 048

REACTIONS (15)
  - Haemorrhage intracranial [Unknown]
  - Immature granulocyte count increased [Unknown]
  - Immunodeficiency [Unknown]
  - Mean platelet volume increased [Unknown]
  - Hyposplenism [Unknown]
  - Immune thrombocytopenia [Unknown]
  - Mean cell volume increased [Unknown]
  - Therapy non-responder [Unknown]
  - Lymphocyte count decreased [Unknown]
  - Neutrophil count increased [Unknown]
  - Nucleated red cells [Unknown]
  - Haemoglobin decreased [Unknown]
  - Confusional state [Unknown]
  - Subdural haemorrhage [Unknown]
  - Platelet count decreased [Unknown]
